FAERS Safety Report 8975907 (Version 1)
Quarter: 2012Q4

REPORT INFORMATION
  Report Type: 
  Country: US (occurrence: US)
  Receive Date: 20121219
  Receipt Date: 20121219
  Transmission Date: 20130627
  Serious: Yes (Hospitalization)
  Sender: FDA-Public Use
  Company Number: US-AMGEN-USASP2012070267

PATIENT
  Age: 72 Year
  Sex: Male

DRUGS (6)
  1. XGEVA [Suspect]
     Indication: BREAST CANCER METASTATIC
     Dosage: 120 mg, q4wk
     Dates: start: 20120531
  2. CALCIUM [Concomitant]
     Dosage: UNK UNK, bid
  3. CALCIUM [Concomitant]
     Dosage: UNK, tid
  4. VITAMIN D /00107901/ [Concomitant]
     Dosage: UNK UNK, bid
  5. VITAMIN D /00107901/ [Concomitant]
     Dosage: UNK, tid
  6. IXEMPRA [Concomitant]
     Indication: BREAST CANCER MALE
     Dosage: UNK

REACTIONS (3)
  - Hypocalcaemia [Recovered/Resolved]
  - Blood calcium abnormal [Recovered/Resolved]
  - Creatinine renal clearance abnormal [Recovered/Resolved]
